FAERS Safety Report 7131129-5 (Version None)
Quarter: 2010Q4

REPORT INFORMATION
  Report Type: 
  Country: None (occurrence: None)
  Receive Date: 20101124
  Receipt Date: 20101124
  Transmission Date: 20110411
  Serious: No
  Sender: FDA-Public Use
  Company Number: None

PATIENT
  Age: 69 Year
  Sex: Female
  Weight: 83.0083 kg

DRUGS (4)
  1. PREDNISOLONE [Suspect]
     Indication: CORNEAL TRANSPLANT
     Dosage: 4X DAY EYE DROP
     Dates: start: 20060101, end: 20100101
  2. PREDNISOLONE [Suspect]
     Indication: GLAUCOMA
     Dosage: 4X DAY EYE DROP
     Dates: start: 20060101, end: 20100101
  3. ALPHAGAN [Suspect]
     Dosage: 2X EYE DROP
  4. TIMILOL EYE DROPS [Suspect]
     Dosage: 2X DAY EYE DROP

REACTIONS (2)
  - INCORRECT DOSE ADMINISTERED [None]
  - PRODUCT CONTAINER ISSUE [None]
